FAERS Safety Report 21062744 (Version 2)
Quarter: 2022Q3

REPORT INFORMATION
  Report Type: Spontaneous
  Country: US (occurrence: US)
  Receive Date: 20220711
  Receipt Date: 20220714
  Transmission Date: 20221026
  Serious: No
  Sender: FDA-Public Use
  Company Number: US-SANOFI-01176807

PATIENT
  Sex: Female
  Weight: 81.6 kg

DRUGS (7)
  1. OXALIPLATIN [Suspect]
     Active Substance: OXALIPLATIN
     Indication: Colon cancer
     Dosage: 210 MG
     Dates: start: 20220630
  2. XELODA [Concomitant]
     Active Substance: CAPECITABINE
     Dosage: 500 MG, QID
     Dates: start: 2022
  3. XELODA [Concomitant]
     Active Substance: CAPECITABINE
     Dosage: 500 MG, BID
  4. DECADRON [Concomitant]
     Active Substance: DEXAMETHASONE
     Dosage: 2 DF
  5. PALONOSETRON HYDROCHLORIDE [Concomitant]
     Active Substance: PALONOSETRON HYDROCHLORIDE
     Dosage: UNK
  6. DEXTROSE [Concomitant]
     Active Substance: DEXTROSE
     Dosage: UNK
  7. COMPAZINE [Concomitant]
     Active Substance: PROCHLORPERAZINE MALEATE

REACTIONS (6)
  - Vision blurred [Unknown]
  - Paraesthesia [Unknown]
  - Gait disturbance [Unknown]
  - Product use issue [Unknown]
  - Temperature intolerance [Unknown]
  - Speech disorder [Unknown]

NARRATIVE: CASE EVENT DATE: 20220101
